FAERS Safety Report 12358767 (Version 1)
Quarter: 2016Q2

REPORT INFORMATION
  Report Type: Spontaneous
  Country: DE (occurrence: DE)
  Receive Date: 20160512
  Receipt Date: 20160512
  Transmission Date: 20160815
  Serious: Yes (Other)
  Sender: FDA-Public Use
  Company Number: DE-BRISTOL-MYERS SQUIBB COMPANY-BMS-2016-029748

PATIENT
  Sex: Male
  Weight: 77 kg

DRUGS (2)
  1. OPDIVO [Suspect]
     Active Substance: NIVOLUMAB
     Indication: NON-SMALL CELL LUNG CANCER
     Dosage: UNK
     Route: 065
     Dates: start: 201601
  2. OPDIVO [Suspect]
     Active Substance: NIVOLUMAB
     Dosage: 231 MG, Q2WK
     Route: 042
     Dates: start: 20160202

REACTIONS (1)
  - Sarcoma [Unknown]
